APPROVED DRUG PRODUCT: TAVIST
Active Ingredient: CLEMASTINE FUMARATE
Strength: EQ 0.5MG BASE/5ML **Federal Register determination that product was not discontinued or withdrawn for safety or effectiveness reasons**
Dosage Form/Route: SYRUP;ORAL
Application: N018675 | Product #001
Applicant: NOVARTIS PHARMACEUTICALS CORP
Approved: Jun 28, 1985 | RLD: Yes | RS: No | Type: DISCN